FAERS Safety Report 6596943-3 (Version None)
Quarter: 2010Q1

REPORT INFORMATION
  Report Type: 
  Country: None (occurrence: None)
  Receive Date: 20100222
  Receipt Date: 20100222
  Transmission Date: 20100710
  Serious: No
  Sender: FDA-Public Use
  Company Number: None

PATIENT
  Age: 19 Year
  Sex: Female
  Weight: 58.9676 kg

DRUGS (1)
  1. LEVAQUIN [Suspect]
     Indication: PNEUMONIA MYCOPLASMAL
     Dosage: 500MG 1 TIME DAILY PO
     Route: 048
     Dates: start: 20090414, end: 20090605

REACTIONS (10)
  - BLADDER DISORDER [None]
  - DEPRESSION [None]
  - GASTRIC DISORDER [None]
  - IMPAIRED WORK ABILITY [None]
  - NO THERAPEUTIC RESPONSE [None]
  - PARTNER STRESS [None]
  - SOCIAL AVOIDANT BEHAVIOUR [None]
  - STREPTOCOCCAL INFECTION [None]
  - SUICIDAL IDEATION [None]
  - URINARY TRACT INFECTION [None]
